FAERS Safety Report 19199379 (Version 1)
Quarter: 2021Q2

REPORT INFORMATION
  Report Type: Report from Study
  Country: IN (occurrence: IN)
  Receive Date: 20210430
  Receipt Date: 20210430
  Transmission Date: 20210717
  Serious: Yes (Hospitalization, Other)
  Sender: FDA-Public Use
  Company Number: NVSC2021IN089933

PATIENT
  Age: 28 Year
  Sex: Male

DRUGS (3)
  1. MYFORTIC [Suspect]
     Active Substance: MYCOPHENOLATE SODIUM
     Indication: RENAL TRANSPLANT
     Dosage: 360 MG, BID
     Route: 065
     Dates: start: 20210128
  2. NEORAL [Suspect]
     Active Substance: CYCLOSPORINE
     Indication: RENAL TRANSPLANT
     Dosage: 225 MG, BID
     Route: 048
     Dates: start: 20210128, end: 20210401
  3. TACSANT [Suspect]
     Active Substance: TACROLIMUS
     Indication: RENAL TRANSPLANT
     Dosage: 3.5 MG, BID (CAPSULE)
     Route: 065
     Dates: start: 20210402

REACTIONS (2)
  - Jaundice cholestatic [Recovered/Resolved]
  - Acute allograft nephropathy [Recovered/Resolved]

NARRATIVE: CASE EVENT DATE: 20210402
